FAERS Safety Report 16461002 (Version 2)
Quarter: 2019Q2

REPORT INFORMATION
  Report Type: Spontaneous
  Country: GB (occurrence: GB)
  Receive Date: 20190621
  Receipt Date: 20190621
  Transmission Date: 20190711
  Serious: Yes (Other)
  Sender: FDA-Public Use
  Company Number: GB-ALKEM LABORATORIES LIMITED-GB-ALKEM-2019-02619

PATIENT
  Age: 78 Year
  Sex: Female

DRUGS (3)
  1. OXALIPLATIN. [Suspect]
     Active Substance: OXALIPLATIN
     Indication: CHEMOTHERAPY
     Dosage: 63.75 MILLIGRAM/SQ. METER
     Route: 065
  2. CAPECITABINE. [Suspect]
     Active Substance: CAPECITABINE
     Dosage: 600 MILLIGRAM/SQ. METER, BID
     Route: 065
     Dates: start: 200901
  3. CAPECITABINE. [Suspect]
     Active Substance: CAPECITABINE
     Indication: CHEMOTHERAPY
     Dosage: 937.5 MILLIGRAM/SQ. METER
     Route: 065
     Dates: start: 2008

REACTIONS (5)
  - Neurotoxicity [Unknown]
  - Therapy partial responder [Unknown]
  - Dysmetria [Unknown]
  - Disease progression [Unknown]
  - Dysdiadochokinesis [Unknown]
